FAERS Safety Report 13635360 (Version 1)
Quarter: 2017Q2

REPORT INFORMATION
  Report Type: Spontaneous
  Country: US (occurrence: US)
  Receive Date: 20170609
  Receipt Date: 20170609
  Transmission Date: 20170830
  Serious: No
  Sender: FDA-Public Use
  Company Number: US-PFIZER INC-2017250355

PATIENT
  Age: 62 Year
  Sex: Female
  Weight: 59.86 kg

DRUGS (1)
  1. XELJANZ XR [Suspect]
     Active Substance: TOFACITINIB CITRATE
     Indication: RHEUMATOID ARTHRITIS
     Dosage: 11 MG, DAILY
     Route: 048
     Dates: start: 201702, end: 20170605

REACTIONS (2)
  - Pharyngitis streptococcal [Unknown]
  - Malaise [Unknown]

NARRATIVE: CASE EVENT DATE: 20170605
